FAERS Safety Report 12347691 (Version 1)
Quarter: 2016Q2

REPORT INFORMATION
  Report Type: Spontaneous
  Country: US (occurrence: US)
  Receive Date: 20160509
  Receipt Date: 20160509
  Transmission Date: 20160815
  Serious: No
  Sender: FDA-Public Use
  Company Number: US-GLAXOSMITHKLINE-US2016063942

PATIENT
  Sex: Female

DRUGS (1)
  1. FLONASE [Suspect]
     Active Substance: FLUTICASONE PROPIONATE
     Indication: PRODUCT USED FOR UNKNOWN INDICATION
     Dosage: UNK

REACTIONS (7)
  - Hypersensitivity [Unknown]
  - Swollen tongue [Unknown]
  - Anxiety [Unknown]
  - Pharyngeal oedema [Unknown]
  - Headache [Unknown]
  - Urticaria [Unknown]
  - Blister [Unknown]
